FAERS Safety Report 5145138-9 (Version None)
Quarter: 2006Q4

REPORT INFORMATION
  Report Type: 
  Country: None (occurrence: None)
  Receive Date: 20061107
  Receipt Date: 20060818
  Transmission Date: 20070319
  Serious: Yes (Hospitalization)
  Sender: FDA-Public Use
  Company Number: FR-ELI_LILLY_AND_COMPANY-FR200608004384

PATIENT
  Age: 71 Year
  Sex: Female

DRUGS (3)
  1. FORTEO [Suspect]
     Indication: OSTEOPOROSIS
     Dosage: 20 UG, DAILY (1/D)
     Route: 058
     Dates: start: 20051224
  2. FLUDEX [Concomitant]
     Indication: HYPERTENSION
     Dosage: 4 D/F, DAILY (1/D)
  3. ACETAMINOPHEN W/ PROPOXYPHENE HCL [Concomitant]
     Indication: PAIN
     Dosage: 6 D/F, DAILY (1/D)

REACTIONS (4)
  - ERYSIPELAS [None]
  - INFECTION [None]
  - PHLEBITIS [None]
  - PYREXIA [None]
